FAERS Safety Report 14906938 (Version 2)
Quarter: 2018Q4

REPORT INFORMATION
  Report Type: Spontaneous
  Country: CA (occurrence: CA)
  Receive Date: 20180517
  Receipt Date: 20181012
  Transmission Date: 20190204
  Serious: Yes (Other)
  Sender: FDA-Public Use
  Company Number: CA-CONCORDIA PHARMACEUTICALS INC.-GSH201805-001645

PATIENT
  Age: 59 Year
  Sex: Female
  Weight: 98 kg

DRUGS (24)
  1. ENBREL [Suspect]
     Active Substance: ETANERCEPT
     Route: 058
  2. LANTUS [Concomitant]
     Active Substance: INSULIN GLARGINE
  3. METHOTREXATE. [Suspect]
     Active Substance: METHOTREXATE
     Route: 030
     Dates: start: 2009
  4. ERGOCALCIFEROL. [Concomitant]
     Active Substance: ERGOCALCIFEROL
  5. HYDROXYCHLOROQUINE TABLET [Suspect]
     Active Substance: HYDROXYCHLOROQUINE
     Route: 048
  6. XELJANZ [Concomitant]
     Active Substance: TOFACITINIB CITRATE
  7. PLAQUENIL [Suspect]
     Active Substance: HYDROXYCHLOROQUINE SULFATE
     Indication: RHEUMATOID ARTHRITIS
     Route: 048
  8. ARAVA [Suspect]
     Active Substance: LEFLUNOMIDE
     Indication: RHEUMATOID ARTHRITIS
     Route: 048
     Dates: start: 2010
  9. NAPROSYN [Concomitant]
     Active Substance: NAPROXEN
  10. CALCIUM CARBONATE VITAMIN D3 [Concomitant]
  11. VITAMIN D3 [Concomitant]
     Active Substance: CHOLECALCIFEROL
  12. CALCIUM [Concomitant]
     Active Substance: CALCIUM
  13. LOZIDE [Concomitant]
     Active Substance: INDAPAMIDE
  14. HYDROXYCHLOROQUINE TABLET [Suspect]
     Active Substance: HYDROXYCHLOROQUINE
     Route: 048
  15. ACTEMRA [Suspect]
     Active Substance: TOCILIZUMAB
     Route: 042
  16. ENBREL [Suspect]
     Active Substance: ETANERCEPT
     Indication: RHEUMATOID ARTHRITIS
     Route: 058
     Dates: start: 2009
  17. ORENCIA [Suspect]
     Active Substance: ABATACEPT
     Indication: RHEUMATOID ARTHRITIS
     Route: 042
     Dates: start: 201104, end: 2014
  18. METFORMIN HYDROCHLORIDE. [Suspect]
     Active Substance: METFORMIN HYDROCHLORIDE
     Route: 065
  19. ACETYLSALICYLIC ACID [Concomitant]
     Active Substance: ASPIRIN
  20. RAMIPRIL. [Concomitant]
     Active Substance: RAMIPRIL
  21. ACTEMRA [Suspect]
     Active Substance: TOCILIZUMAB
     Indication: RHEUMATOID ARTHRITIS
     Route: 042
  22. METHOTREXATE. [Suspect]
     Active Substance: METHOTREXATE
     Route: 048
  23. ORENCIA [Suspect]
     Active Substance: ABATACEPT
     Route: 042
  24. PREDNISONE. [Concomitant]
     Active Substance: PREDNISONE

REACTIONS (9)
  - Drug effect decreased [Unknown]
  - Joint swelling [Unknown]
  - Condition aggravated [Not Recovered/Not Resolved]
  - Contraindicated product administered [Unknown]
  - Drug ineffective [Unknown]
  - Red blood cell sedimentation rate abnormal [Not Recovered/Not Resolved]
  - Rheumatoid arthritis [Not Recovered/Not Resolved]
  - Impaired work ability [Not Recovered/Not Resolved]
  - Interstitial lung disease [Not Recovered/Not Resolved]
